FAERS Safety Report 5903580-X (Version None)
Quarter: 2008Q3

REPORT INFORMATION
  Report Type: 
  Country: None (occurrence: None)
  Receive Date: 20080930
  Receipt Date: 20080918
  Transmission Date: 20090109
  Serious: Yes (Disabling, Other)
  Sender: FDA-Public Use
  Company Number: JP-PFIZER INC-2008058000

PATIENT
  Sex: Male
  Weight: 46 kg

DRUGS (7)
  1. IRINOTECAN HCL [Suspect]
     Indication: GASTRIC CANCER
     Dosage: DAILY DOSE:213MG
     Route: 042
     Dates: start: 20080516, end: 20080516
  2. IRINOTECAN HCL [Suspect]
     Dosage: DAILY DOSE:107.4MG
     Dates: start: 20080613, end: 20080613
  3. NASEA [Concomitant]
     Indication: PREMEDICATION
     Route: 042
     Dates: start: 20080516, end: 20080613
  4. DECADRON [Concomitant]
     Indication: PREMEDICATION
     Route: 042
     Dates: start: 20080516, end: 20080613
  5. ALFACALCIDOL [Concomitant]
     Indication: HYPOTHYROIDISM
     Route: 048
     Dates: start: 20080516, end: 20080613
  6. LEVOTHYROXINE SODIUM [Concomitant]
     Indication: HYPOTHYROIDISM
     Route: 048
  7. PROTERNOL-L [Concomitant]
     Indication: ARRHYTHMIA
     Route: 042
     Dates: start: 20080627, end: 20080627

REACTIONS (2)
  - ATRIOVENTRICULAR BLOCK COMPLETE [None]
  - NEUTROPENIA [None]
